FAERS Safety Report 5576548-3 (Version None)
Quarter: 2007Q4

REPORT INFORMATION
  Report Type: 
  Country: None (occurrence: None)
  Receive Date: 20071228
  Receipt Date: 20071220
  Transmission Date: 20080405
  Serious: Yes (Hospitalization)
  Sender: FDA-Public Use
  Company Number: B0501220A

PATIENT
  Age: 74 Year
  Sex: Male

DRUGS (9)
  1. LANOXIN [Suspect]
     Indication: DRUG USE FOR UNKNOWN INDICATION
     Dosage: .25MG PER DAY
     Route: 048
  2. RAMIPRIL [Suspect]
     Indication: DRUG USE FOR UNKNOWN INDICATION
     Dosage: 10MG PER DAY
     Route: 065
  3. ALDACTIDE [Suspect]
     Indication: DRUG USE FOR UNKNOWN INDICATION
     Dosage: 75MG PER DAY
     Route: 048
  4. FUROSEMIDE [Suspect]
     Indication: DRUG USE FOR UNKNOWN INDICATION
     Dosage: 40MG PER DAY
     Route: 065
  5. EMCOR [Concomitant]
     Route: 065
  6. ISTIN [Concomitant]
     Route: 065
  7. LIPITOR [Concomitant]
     Route: 065
  8. OMEPRAZOLE [Concomitant]
     Route: 065
  9. WARFARIN SODIUM [Concomitant]
     Route: 065

REACTIONS (5)
  - ANOREXIA [None]
  - COUGH [None]
  - DYSPNOEA [None]
  - OEDEMA [None]
  - SOMNOLENCE [None]
